FAERS Safety Report 18689961 (Version 2)
Quarter: 2021Q1

REPORT INFORMATION
  Report Type: Spontaneous
  Country: US (occurrence: US)
  Receive Date: 20201231
  Receipt Date: 20210216
  Transmission Date: 20210419
  Serious: Yes (Other)
  Sender: FDA-Public Use
  Company Number: US-ASTRAZENECA-2020SF74070

PATIENT
  Sex: Female
  Weight: 111.1 kg

DRUGS (2)
  1. SYMBICORT [Suspect]
     Active Substance: BUDESONIDE\FORMOTEROL FUMARATE DIHYDRATE
     Indication: ASTHMA
     Dosage: 160/4.5 MCG, TWO TIMES A DAY
     Route: 055
  2. SYMBICORT [Suspect]
     Active Substance: BUDESONIDE\FORMOTEROL FUMARATE DIHYDRATE
     Indication: CHRONIC OBSTRUCTIVE PULMONARY DISEASE
     Dosage: 160/4.5 MCG, TWO TIMES A DAY
     Route: 055

REACTIONS (8)
  - Wrong technique in device usage process [Unknown]
  - Hip fracture [Unknown]
  - Limb asymmetry [Unknown]
  - Femur fracture [Unknown]
  - Body height decreased [Unknown]
  - Incorrect dose administered [Unknown]
  - Off label use [Unknown]
  - Drug delivery system issue [Unknown]
